FAERS Safety Report 23248579 (Version 1)
Quarter: 2023Q4

REPORT INFORMATION
  Report Type: Spontaneous
  Country: US (occurrence: US)
  Receive Date: 20231201
  Receipt Date: 20231201
  Transmission Date: 20240110
  Serious: Yes (Other)
  Sender: FDA-Public Use
  Company Number: ENDB23-04366

PATIENT
  Sex: Male

DRUGS (1)
  1. XIAFLEX [Suspect]
     Active Substance: COLLAGENASE CLOSTRIDIUM HISTOLYTICUM
     Indication: Peyronie^s disease
     Dosage: 0.58 MILLIGRAM, UNKNOWN (CYCLE ONE, INJECTION ONE)
     Route: 051
     Dates: start: 20231116

REACTIONS (2)
  - Penile necrosis [Not Recovered/Not Resolved]
  - Blood blister [Not Recovered/Not Resolved]

NARRATIVE: CASE EVENT DATE: 20231101
